FAERS Safety Report 13794523 (Version 1)
Quarter: 2017Q3

REPORT INFORMATION
  Report Type: Report from Study
  Country: KR (occurrence: KR)
  Receive Date: 20170726
  Receipt Date: 20170726
  Transmission Date: 20171127
  Serious: Yes (Other)
  Sender: FDA-Public Use
  Company Number: KR-B.I. PHARMACEUTICALS,INC./RIDGEFIELD-2017-BI-004061

PATIENT
  Age: 74 Year
  Sex: Female

DRUGS (11)
  1. EPERISONE [Concomitant]
     Active Substance: EPERISONE
     Indication: CEREBROVASCULAR ACCIDENT
     Route: 065
     Dates: start: 20150524
  2. HYDROCHLOROTHIAZIDE. [Concomitant]
     Active Substance: HYDROCHLOROTHIAZIDE
     Indication: CARDIAC FAILURE CONGESTIVE
     Route: 065
     Dates: start: 20150804
  3. BISOPROLOL [Concomitant]
     Active Substance: BISOPROLOL
     Indication: ATRIAL FIBRILLATION
     Route: 065
     Dates: start: 20150804
  4. PRADAXA [Suspect]
     Active Substance: DABIGATRAN ETEXILATE MESYLATE
     Indication: ATRIAL FIBRILLATION
     Route: 065
     Dates: start: 20150708
  5. REBAMIPIDE [Concomitant]
     Active Substance: REBAMIPIDE
     Indication: PEPTIC ULCER
     Route: 065
     Dates: start: 20150524
  6. CHOLINE ALFOSCERATE [Concomitant]
     Active Substance: CHOLINE ALFOSCERATE
     Indication: CEREBROVASCULAR ACCIDENT
     Route: 065
     Dates: start: 20150524
  7. BENZCRAZIDE HYDROCHLORIDE + LEVODOPA [Concomitant]
     Indication: PARKINSON^S DISEASE
     Dosage: BENZCRAZIDE HYDROCHLORIDE 50 MG + LEVODOPA200 MG
     Route: 065
     Dates: start: 20150520, end: 20151012
  8. ALOGLIPTIN. [Concomitant]
     Active Substance: ALOGLIPTIN
     Indication: DIABETES MELLITUS
     Route: 065
     Dates: start: 20140827, end: 20150803
  9. ROPINIROLE. [Concomitant]
     Active Substance: ROPINIROLE
     Indication: PARKINSON^S DISEASE
     Route: 065
     Dates: start: 20150520
  10. LEVODOPA + CARBIDOPA + ENTACAPONE [Concomitant]
     Active Substance: CARBIDOPA\ENTACAPONE\LEVODOPA
     Indication: PARKINSON^S DISEASE
     Dosage: LEVODOPA 100 MG + CARBIDOPA 27 MG + ENTACAPONE 200 MG
     Route: 065
     Dates: start: 20151013
  11. ALOGLIPTIN. [Concomitant]
     Active Substance: ALOGLIPTIN
     Route: 065
     Dates: start: 20150804

REACTIONS (1)
  - Cardiac failure congestive [Not Recovered/Not Resolved]

NARRATIVE: CASE EVENT DATE: 20150804
